FAERS Safety Report 15887563 (Version 1)
Quarter: 2019Q1

REPORT INFORMATION
  Report Type: Spontaneous
  Country: FR (occurrence: FR)
  Receive Date: 20190130
  Receipt Date: 20190130
  Transmission Date: 20190417
  Serious: Yes (Hospitalization)
  Sender: FDA-Public Use
  Company Number: FR-SUN PHARMACEUTICAL INDUSTRIES LTD-2019RR-197382

PATIENT
  Age: 51 Year
  Sex: Female
  Weight: 76 kg

DRUGS (3)
  1. ADRENALINE [Suspect]
     Active Substance: EPINEPHRINE
     Indication: PRODUCT USED FOR UNKNOWN INDICATION
     Dosage: IN TOTAL
     Route: 055
     Dates: start: 20181107, end: 20181107
  2. TRAMADOL. [Suspect]
     Active Substance: TRAMADOL
     Indication: PROCEDURAL PAIN
     Dosage: AS NECESSARY
     Route: 042
     Dates: start: 20181107, end: 20181112
  3. CHLORHYDRATE DE NEFOPAM [Suspect]
     Active Substance: NEFOPAM HYDROCHLORIDE
     Indication: PROCEDURAL PAIN
     Dosage: AS NECESSARY
     Route: 042
     Dates: start: 20181107, end: 20181112

REACTIONS (1)
  - Pupils unequal [Recovering/Resolving]

NARRATIVE: CASE EVENT DATE: 20181108
